FAERS Safety Report 17299350 (Version 1)
Quarter: 2020Q1

REPORT INFORMATION
  Report Type: Spontaneous
  Country: US (occurrence: US)
  Receive Date: 20200122
  Receipt Date: 20200122
  Transmission Date: 20200409
  Serious: No
  Sender: FDA-Public Use
  Company Number: US-ALLERGAN-1912257US

PATIENT
  Age: 57 Year
  Sex: Female

DRUGS (9)
  1. PROGESTERONE. [Concomitant]
     Active Substance: PROGESTERONE
     Dosage: UNK
  2. VALTREX [Concomitant]
     Active Substance: VALACYCLOVIR HYDROCHLORIDE
     Indication: CHRONIC FATIGUE SYNDROME
  3. SERTRALINE [Concomitant]
     Active Substance: SERTRALINE HYDROCHLORIDE
     Dosage: UNK
     Route: 048
  4. XELJANZ [Concomitant]
     Active Substance: TOFACITINIB CITRATE
     Dosage: UNK
  5. RESTASIS [Suspect]
     Active Substance: CYCLOSPORINE
     Indication: DRY EYE
     Dosage: 2 GTT, BID
     Route: 047
     Dates: start: 20190315, end: 20190315
  6. SYNTHROID [Concomitant]
     Active Substance: LEVOTHYROXINE SODIUM
     Indication: HYPOTHYROIDISM
     Dosage: UNK
     Route: 048
  7. CELEBREX [Concomitant]
     Active Substance: CELECOXIB
     Dosage: UNK
     Route: 048
  8. VALTREX [Concomitant]
     Active Substance: VALACYCLOVIR HYDROCHLORIDE
     Indication: POST VIRAL FATIGUE SYNDROME
     Dosage: UNK
     Route: 048
  9. 15 UNKNOWN SUPPLEMENTS [Concomitant]
     Dosage: UNK
     Route: 048

REACTIONS (7)
  - Excessive eye blinking [Recovered/Resolved]
  - Incorrect dose administered [Unknown]
  - Eye irritation [Recovered/Resolved]
  - Dry eye [Recovered/Resolved]
  - Foreign body sensation in eyes [Recovered/Resolved]
  - Periorbital pain [Recovered/Resolved]
  - Eye pruritus [Recovered/Resolved]

NARRATIVE: CASE EVENT DATE: 20190315
